FAERS Safety Report 4856252-7 (Version None)
Quarter: 2005Q4

REPORT INFORMATION
  Report Type: 
  Country: None (occurrence: None)
  Receive Date: 20051215
  Receipt Date: 20051205
  Transmission Date: 20060501
  Serious: Yes (Other)
  Sender: FDA-Public Use
  Company Number: 2005159663

PATIENT
  Age: 24 Year
  Sex: Female

DRUGS (2)
  1. LISTERINE (MENTHOL, METHYL SALICYLATE, EUCALYPTOL, THYMOL) [Suspect]
     Indication: DENTAL DISORDER PROPHYLAXIS
     Dosage: BID, ORAL
     Route: 048
     Dates: start: 20051110
  2. FEMODENE (ETHINYLESTRADIOL, GESTODENE) [Concomitant]

REACTIONS (4)
  - DRY MOUTH [None]
  - FACIAL PALSY [None]
  - GLOSSODYNIA [None]
  - ORAL DISCOMFORT [None]
